FAERS Safety Report 4414540-2 (Version None)
Quarter: 2004Q2

REPORT INFORMATION
  Report Type: 
  Country: None (occurrence: None)
  Receive Date: 20040621
  Receipt Date: 20031201
  Transmission Date: 20050107
  Serious: Yes (Death)
  Sender: FDA-Public Use
  Company Number: USA-2003-0011963

PATIENT
  Age: 43 Year
  Sex: Female
  Weight: 58 kg

DRUGS (13)
  1. OXYCODONE HCL [Suspect]
  2. OXYMORPHONE HYDROCHLORIDE [Suspect]
  3. ETHANOL (ETHANOL) [Suspect]
  4. DOXYLAMINE (DOXYLAMINE) [Suspect]
  5. SERTRALINE HYDROCHLORIDE [Suspect]
  6. CHLORPHENIRAMINE TAB [Suspect]
  7. ACETAMINOPHEN [Suspect]
  8. IBUPROFEN [Suspect]
  9. CAFFEINE (CAFFEINE) [Suspect]
  10. QUININE (QUININE) [Suspect]
  11. GUAIPHENESIN (GUAIFENESIN) [Suspect]
  12. QUINIDINE (QUINIDINE) [Suspect]
  13. NICOTINE [Suspect]

REACTIONS (2)
  - ACCIDENTAL OVERDOSE [None]
  - MULTIPLE DRUG OVERDOSE [None]
